FAERS Safety Report 25982415 (Version 2)
Quarter: 2025Q4

REPORT INFORMATION
  Report Type: Report from Study
  Country: JP (occurrence: JP)
  Receive Date: 20251031
  Receipt Date: 20251119
  Transmission Date: 20260118
  Serious: Yes (Hospitalization)
  Sender: ABBVIE
  Company Number: JP-ABBVIE-6119383

PATIENT
  Age: 65 Year
  Sex: Male

DRUGS (1)
  1. VYALEV [Suspect]
     Active Substance: FOSCARBIDOPA\FOSLEVODOPA
     Indication: Parkinson^s disease
     Dosage: DOSE: 6.0 ML/DAY
     Route: 058
     Dates: start: 20240906

REACTIONS (5)
  - Myocardial infarction [Recovered/Resolved]
  - Infusion site erythema [Unknown]
  - Infusion site induration [Unknown]
  - Wrong technique in device usage process [Unknown]
  - Infusion site induration [Recovered/Resolved]

NARRATIVE: CASE EVENT DATE: 20250303
